FAERS Safety Report 7233466-2 (Version None)
Quarter: 2011Q1

REPORT INFORMATION
  Report Type: 
  Country: None (occurrence: None)
  Receive Date: 20110107
  Receipt Date: 20101223
  Transmission Date: 20110831
  Serious: Yes (Death, Hospitalization)
  Sender: FDA-Public Use
  Company Number: 2010002571

PATIENT
  Age: 55 Year
  Sex: Female
  Weight: 66 kg

DRUGS (29)
  1. ENOXAPARIN SODIUM [Concomitant]
  2. SODIUM PHOSPHATE [Concomitant]
  3. GUAIFENESIN AND DEXTROMETHORPHAN HBR [Concomitant]
  4. MORPHINE [Concomitant]
  5. ONDANSETRON HYDROCHLORIDE [Concomitant]
  6. PIPERACILLIN [Concomitant]
  7. SODIUM CHLORIDE 0.9% [Concomitant]
  8. PREGABALIN [Concomitant]
  9. PROMETHAZINE [Concomitant]
  10. MAGNESIUM SULFATE [Concomitant]
  11. METHYLPREDNISOLONE [Concomitant]
  12. MEROPENEM [Concomitant]
  13. POTASSIUM CHLORIDE [Concomitant]
  14. LEVOFLOXACIN [Concomitant]
  15. PREDNISONE TAB [Concomitant]
  16. ACETAMINOPHEN [Concomitant]
  17. CIPROFLOXACIN [Concomitant]
  18. DEXTROSE 5% [Concomitant]
  19. INSULIN HUMAN (INSULIN HUMAN) [Concomitant]
  20. FLUOXETINE [Concomitant]
  21. FLUTICASONE / SALMETEROL [Concomitant]
  22. MONTELUKAST SODIUM [Concomitant]
  23. ERLOTINIB (ERLOTINIB) (TABLET) (ERLOTINIB) [Suspect]
     Indication: NON-SMALL CELL LUNG CANCER
     Dosage: 150 MG, QD, ORAL
     Route: 048
  24. PANTOPRAZOLE SODIUM [Concomitant]
  25. SODIUM CHLORIDE 0.9% [Concomitant]
  26. LEVALBUTEROL HYDROCHLORIDE [Concomitant]
  27. VANCOMYCIN HYDROCHLORIDE [Concomitant]
  28. IPRATROPIUM BROMIDE [Concomitant]
  29. ZOLPIDEM TARTRATE [Concomitant]

REACTIONS (5)
  - BLOOD GLUCOSE INCREASED [None]
  - CHRONIC OBSTRUCTIVE PULMONARY DISEASE [None]
  - HAEMATOCRIT DECREASED [None]
  - PNEUMONIA [None]
  - HAEMOGLOBIN DECREASED [None]
